FAERS Safety Report 7541733-8 (Version None)
Quarter: 2011Q2

REPORT INFORMATION
  Report Type: 
  Country: None (occurrence: None)
  Receive Date: 20110613
  Receipt Date: 20110520
  Transmission Date: 20111010
  Serious: No
  Sender: FDA-Public Use
  Company Number: US-JNJFOC-20110600225

PATIENT
  Sex: Female
  Weight: 75.3 kg

DRUGS (1)
  1. INVEGA SUSTENNA [Suspect]
     Indication: SCHIZOPHRENIA
     Route: 030
     Dates: start: 20070101

REACTIONS (4)
  - DIZZINESS [None]
  - HYPERSOMNIA [None]
  - INSOMNIA [None]
  - FEELING OF BODY TEMPERATURE CHANGE [None]
